FAERS Safety Report 9600850 (Version 1)
Quarter: 2013Q4

REPORT INFORMATION
  Report Type: Spontaneous
  Country: US (occurrence: US)
  Receive Date: 20131004
  Receipt Date: 20131004
  Transmission Date: 20140711
  Serious: No
  Sender: FDA-Public Use
  Company Number: US-AMGEN-USASP2013037882

PATIENT
  Age: 51 Year
  Sex: Male
  Weight: 74.83 kg

DRUGS (8)
  1. ENBREL [Suspect]
     Indication: PRODUCT USED FOR UNKNOWN INDICATION
     Dosage: 50 MG, QWK
     Route: 058
  2. PERCOCET                           /00867901/ [Concomitant]
     Dosage: 7.5-325
  3. VITAMIN D                          /00107901/ [Concomitant]
     Dosage: 400 UNIT, UNK
  4. ZOLPIDEM [Concomitant]
     Dosage: 5 MG, UNK
  5. BUPROPION [Concomitant]
     Dosage: 75 MG, UNK
  6. ATORVASTATIN [Concomitant]
     Dosage: 10 MG, UNK
  7. NEXIUM                             /01479302/ [Concomitant]
     Dosage: 40 MG, UNK
  8. PRESTIGESIC [Concomitant]
     Dosage: UNK

REACTIONS (2)
  - Haemorrhoids [Unknown]
  - Pain [Unknown]
